FAERS Safety Report 8270481 (Version 5)
Quarter: 2012Q4

REPORT INFORMATION
  Report Type: Report from Study
  Country: AU (occurrence: AU)
  Receive Date: 20111201
  Receipt Date: 20120905
  Transmission Date: 20130627
  Serious: Yes (Hospitalization, Other)
  Sender: FDA-Public Use
  Company Number: AU-ROCHE-1010535

PATIENT
  Age: 38 Year
  Sex: Female
  Weight: 112 kg

DRUGS (9)
  1. COPEGUS [Suspect]
     Indication: HEPATITIS C
     Route: 048
     Dates: start: 20100806
  2. PEGASYS [Suspect]
     Indication: HEPATITIS C
     Route: 058
     Dates: start: 20100806
  3. AVANZA [Concomitant]
     Route: 065
     Dates: start: 20110603
  4. THYROXINE [Concomitant]
  5. SERETIDE [Concomitant]
     Route: 065
     Dates: start: 201106
  6. ZYPREXA [Concomitant]
     Route: 065
     Dates: start: 20101122
  7. SEROQUEL [Concomitant]
  8. NEXIUM [Concomitant]
     Route: 065
     Dates: start: 20110114
  9. SALBUTAMOL [Concomitant]
     Dosage: 12 puff
     Route: 065

REACTIONS (2)
  - Chronic obstructive pulmonary disease [Recovered/Resolved]
  - Mesangioproliferative glomerulonephritis [Recovered/Resolved]
